FAERS Safety Report 5897420-5 (Version None)
Quarter: 2008Q3

REPORT INFORMATION
  Report Type: 
  Country: None (occurrence: None)
  Receive Date: 20080902
  Receipt Date: 20080714
  Transmission Date: 20090109
  Serious: Yes (Other)
  Sender: FDA-Public Use
  Company Number: 174581USA

PATIENT
  Age: 77 Year
  Sex: Female
  Weight: 76.2043 kg

DRUGS (3)
  1. AMLODIPINE BESYLATE [Suspect]
     Indication: HYPERTENSION
     Dosage: 5/20MG, ORAL ; (20 MG)
     Route: 048
     Dates: start: 20070601, end: 20080315
  2. AMLODIPINE BESYLATE [Suspect]
     Indication: HYPERTENSION
     Dosage: 5/20MG, ORAL ; (20 MG)
     Route: 048
     Dates: start: 20070601, end: 20080315
  3. METOPROLOL TARTRATE [Suspect]
     Indication: HYPERTENSION
     Dosage: (100 MG)
     Dates: start: 20070601, end: 20080315

REACTIONS (3)
  - RASH [None]
  - URTICARIA [None]
  - XEROSIS [None]
